FAERS Safety Report 13911315 (Version 1)
Quarter: 2017Q3

REPORT INFORMATION
  Report Type: Spontaneous
  Country: US (occurrence: US)
  Receive Date: 20170828
  Receipt Date: 20170828
  Transmission Date: 20171127
  Serious: No
  Sender: FDA-Public Use
  Company Number: US-SA-2017SA097629

PATIENT
  Sex: Male

DRUGS (3)
  1. CERDELGA [Suspect]
     Active Substance: ELIGLUSTAT
     Route: 048
     Dates: start: 201705
  2. CERDELGA [Suspect]
     Active Substance: ELIGLUSTAT
     Route: 048
  3. CERDELGA [Suspect]
     Active Substance: ELIGLUSTAT
     Route: 048
     Dates: end: 201705

REACTIONS (5)
  - Disease progression [Unknown]
  - Treatment noncompliance [Unknown]
  - Drug ineffective [Unknown]
  - Gastrointestinal disorder [Unknown]
  - Bone pain [Unknown]
